FAERS Safety Report 5376578-0 (Version None)
Quarter: 2007Q2

REPORT INFORMATION
  Report Type: 
  Country: None (occurrence: None)
  Receive Date: 20070629
  Receipt Date: 20070619
  Transmission Date: 20071010
  Serious: Yes (Other)
  Sender: FDA-Public Use
  Company Number: 2007SP012235

PATIENT
  Sex: Female

DRUGS (1)
  1. ECURAL (MOMETASONE FUROATE (TOPICAL)) (MOMETASONE FUROATE) [Suspect]
     Indication: DERMATITIS
     Dosage: 40 GM; QD; TOP
     Route: 061

REACTIONS (2)
  - BLOOD CORTISOL DECREASED [None]
  - DRUG EXPOSURE DURING PREGNANCY [None]
